FAERS Safety Report 13123519 (Version 1)
Quarter: 2017Q1

REPORT INFORMATION
  Report Type: Spontaneous
  Country: US (occurrence: US)
  Receive Date: 20170117
  Receipt Date: 20170117
  Transmission Date: 20170428
  Serious: Yes (Hospitalization, Other)
  Sender: FDA-Public Use
  Company Number: US-IMPAX LABORATORIES, INC-2016-IPXL-02240

PATIENT
  Age: 77 Year
  Sex: Male
  Weight: 95 kg

DRUGS (7)
  1. PROSOURCE [Interacting]
     Active Substance: DIETARY SUPPLEMENT
     Indication: ENTERAL NUTRITION
     Dosage: 2 PACKETS, 1/DAY
     Route: 048
  2. PRAMIPEXOLE. [Concomitant]
     Active Substance: PRAMIPEXOLE
     Indication: PARKINSON^S DISEASE
     Dosage: 1.5 MG, 3 /DAY
     Route: 048
  3. CARBIDOPA-LEVODOPA ER [Suspect]
     Active Substance: CARBIDOPA\LEVODOPA
     Indication: PARKINSON^S DISEASE
     Dosage: 25/100 MG,1.5 TABLETS, 4/DAY
     Route: 048
  4. NUTREN 1.5 [Interacting]
     Active Substance: DIETARY SUPPLEMENT
     Dosage: 1 CAN BOLUS FEED, EVERY 4 HR
     Route: 050
  5. ENTACAPONE. [Concomitant]
     Active Substance: ENTACAPONE
     Indication: PARKINSON^S DISEASE
     Dosage: 200 MG, 4 /DAY
     Route: 048
  6. NUTREN 1.5 [Interacting]
     Active Substance: DIETARY SUPPLEMENT
     Indication: ENTERAL NUTRITION
     Dosage: AT GOAL RATE OF 70 ML/HR, VIA GASTRIC TUBE, CONTINUOUSLY
     Route: 050
  7. CARBIDOPA-LEVODOPA ER [Interacting]
     Active Substance: CARBIDOPA\LEVODOPA
     Dosage: 25/250 MG, 4/DAY
     Route: 048

REACTIONS (3)
  - Basal ganglia haemorrhage [Recovering/Resolving]
  - Food interaction [Unknown]
  - Drug effect decreased [Recovering/Resolving]
